FAERS Safety Report 6965723-9 (Version None)
Quarter: 2010Q3

REPORT INFORMATION
  Report Type: 
  Country: None (occurrence: None)
  Receive Date: 20100903
  Receipt Date: 20100827
  Transmission Date: 20110219
  Serious: Yes (Other)
  Sender: FDA-Public Use
  Company Number: US-ROCHE-724542

PATIENT
  Sex: Female

DRUGS (2)
  1. AVASTIN [Suspect]
     Dosage: ROUTE: IN THE EYE
     Route: 047
  2. LUCENTIS [Suspect]
     Dosage: ROUTE: IN THE EYE
     Route: 047

REACTIONS (1)
  - SCOTOMA [None]
